FAERS Safety Report 7977894-6 (Version None)
Quarter: 2011Q4

REPORT INFORMATION
  Report Type: 
  Country: None (occurrence: None)
  Receive Date: 20111214
  Receipt Date: 20111205
  Transmission Date: 20120403
  Serious: Yes (Hospitalization)
  Sender: FDA-Public Use
  Company Number: FR-AMGEN-FRASP2011065324

PATIENT
  Age: 62 Year
  Sex: Female
  Weight: 70 kg

DRUGS (11)
  1. PREDNISONE TAB [Concomitant]
     Dosage: 5 MG, 1X/DAY
  2. ENBREL [Suspect]
     Indication: RHEUMATOID ARTHRITIS
     Dosage: 50 MG, WEEKLY
     Route: 058
     Dates: start: 20100201, end: 20101101
  3. METHOTREXATE [Suspect]
     Dosage: 10 MG, WEEKLY
     Route: 048
  4. PREDNISONE TAB [Concomitant]
     Dosage: 5 MG, 1X/DAY
     Route: 048
  5. OROCAL [Concomitant]
     Dosage: 1 DF, 1X/DAY
  6. UVEDOSE [Concomitant]
     Dosage: 1 DF, ONCE EVERY TWO OR THREE MONTHS
  7. METHOTREXATE [Suspect]
     Dosage: 12.5 MG, WEEKLY
     Route: 048
  8. HUMIRA [Suspect]
     Indication: RHEUMATOID ARTHRITIS
     Dosage: 40 MG, EVERY TWO WEEKS
     Route: 058
     Dates: start: 20101101, end: 20110201
  9. KETOPROFEN [Concomitant]
     Dosage: 150 MG, 2X/DAY
     Route: 048
  10. SPECIAFOLDINE [Concomitant]
     Dosage: 1 DF, WEEKLY
  11. NEXIUM [Concomitant]
     Dosage: 40 MG, 1X/DAY

REACTIONS (3)
  - APHTHOUS STOMATITIS [None]
  - DRUG INEFFECTIVE [None]
  - BASAL CELL CARCINOMA [None]
